FAERS Safety Report 19024238 (Version 1)
Quarter: 2021Q1

REPORT INFORMATION
  Report Type: Spontaneous
  Country: JP (occurrence: JP)
  Receive Date: 20210318
  Receipt Date: 20210318
  Transmission Date: 20210420
  Serious: Yes (Other)
  Sender: FDA-Public Use
  Company Number: NVSJ2021JP004101

PATIENT
  Age: 85 Year
  Sex: Male

DRUGS (6)
  1. IMATINIB. [Suspect]
     Active Substance: IMATINIB MESYLATE
     Dosage: 150 MG
     Route: 065
  2. IMATINIB. [Suspect]
     Active Substance: IMATINIB MESYLATE
     Indication: CHRONIC MYELOID LEUKAEMIA
     Dosage: 300 MG
     Dates: start: 201103
  3. NILOTINIB [Suspect]
     Active Substance: NILOTINIB
     Dosage: 150 MG
     Route: 065
     Dates: start: 201507
  4. NILOTINIB [Suspect]
     Active Substance: NILOTINIB
     Indication: CHRONIC MYELOID LEUKAEMIA
     Dosage: 300 MG
     Route: 065
     Dates: start: 201105
  5. NILOTINIB [Suspect]
     Active Substance: NILOTINIB
     Dosage: 400 MG
     Route: 065
     Dates: start: 201106
  6. NILOTINIB [Suspect]
     Active Substance: NILOTINIB
     Dosage: 150 MG
     Route: 065
     Dates: start: 201108

REACTIONS (6)
  - Abdominal discomfort [Unknown]
  - Bile duct cancer [Unknown]
  - Second primary malignancy [Unknown]
  - Chest pain [Unknown]
  - Diarrhoea [Unknown]
  - Chest discomfort [Unknown]

NARRATIVE: CASE EVENT DATE: 201103
